FAERS Safety Report 6576516-9 (Version None)
Quarter: 2010Q1

REPORT INFORMATION
  Report Type: 
  Country: None (occurrence: None)
  Receive Date: 20100210
  Receipt Date: 20100129
  Transmission Date: 20100710
  Serious: Yes (Hospitalization, Other)
  Sender: FDA-Public Use
  Company Number: US-AMGEN-QUU347881

PATIENT
  Sex: Male

DRUGS (3)
  1. ENBREL [Suspect]
     Indication: PSORIASIS
     Dates: start: 20070508
  2. PSORALEN [Concomitant]
  3. OXSORALEN [Concomitant]

REACTIONS (14)
  - COLOSTOMY [None]
  - DENTAL CARIES [None]
  - DIARRHOEA [None]
  - FALL [None]
  - INFECTION [None]
  - MALAISE [None]
  - NAUSEA [None]
  - OSMOTIC DEMYELINATION SYNDROME [None]
  - PNEUMONIA [None]
  - PRURITUS GENERALISED [None]
  - PSORIASIS [None]
  - RASH PAPULAR [None]
  - TOOTH FRACTURE [None]
  - VOMITING [None]
